FAERS Safety Report 9503675 (Version 2)
Quarter: 2013Q3

REPORT INFORMATION
  Report Type: Spontaneous
  Country: US (occurrence: US)
  Receive Date: 20130906
  Receipt Date: 20130906
  Transmission Date: 20140515
  Serious: Yes (Hospitalization)
  Sender: FDA-Public Use
  Company Number: US-RANBAXY-2010US-39969

PATIENT
  Age: 76 Year
  Sex: Female

DRUGS (3)
  1. FUROSEMIDE [Suspect]
     Indication: HYPERTENSION
     Dosage: UNK
     Route: 065
  2. HYDROCHLOROTHIAZIDE [Suspect]
     Indication: HYPERTENSION
     Route: 065
  3. TRIAMTERENE [Suspect]
     Indication: HYPERTENSION
     Dosage: UNK
     Route: 065

REACTIONS (2)
  - Hyponatraemia [Recovered/Resolved]
  - Stress cardiomyopathy [Recovered/Resolved]
